FAERS Safety Report 19566305 (Version 2)
Quarter: 2022Q1

REPORT INFORMATION
  Report Type: Report from Study
  Country: US (occurrence: US)
  Receive Date: 20210715
  Receipt Date: 20220322
  Transmission Date: 20220424
  Serious: Yes (Hospitalization)
  Sender: FDA-Public Use
  Company Number: US-TAKEDA-2021TUS039406

PATIENT
  Age: 72 Year
  Sex: Female

DRUGS (20)
  1. TEDUGLUTIDE [Suspect]
     Active Substance: TEDUGLUTIDE
     Indication: Short-bowel syndrome
     Dosage: 5 MILLIGRAM, 4/WEEK
     Route: 065
     Dates: start: 20140414
  2. TEDUGLUTIDE [Suspect]
     Active Substance: TEDUGLUTIDE
     Indication: Short-bowel syndrome
     Dosage: 5 MILLIGRAM, 4/WEEK
     Route: 065
     Dates: start: 20140414
  3. TEDUGLUTIDE [Suspect]
     Active Substance: TEDUGLUTIDE
     Indication: Short-bowel syndrome
     Dosage: 5 MILLIGRAM, 4/WEEK
     Route: 065
     Dates: start: 20140414
  4. TEDUGLUTIDE [Suspect]
     Active Substance: TEDUGLUTIDE
     Indication: Short-bowel syndrome
     Dosage: 5 MILLIGRAM, 4/WEEK
     Route: 065
     Dates: start: 20140414
  5. TEDUGLUTIDE [Suspect]
     Active Substance: TEDUGLUTIDE
     Dosage: 0.5 MILLIGRAM, 3/WEEK
     Route: 065
     Dates: start: 20181008
  6. TEDUGLUTIDE [Suspect]
     Active Substance: TEDUGLUTIDE
     Dosage: 0.5 MILLIGRAM, 3/WEEK
     Route: 065
     Dates: start: 20181008
  7. TEDUGLUTIDE [Suspect]
     Active Substance: TEDUGLUTIDE
     Dosage: 0.5 MILLIGRAM, 3/WEEK
     Route: 065
     Dates: start: 20181008
  8. TEDUGLUTIDE [Suspect]
     Active Substance: TEDUGLUTIDE
     Dosage: 0.5 MILLIGRAM, 3/WEEK
     Route: 065
     Dates: start: 20181008
  9. TEDUGLUTIDE [Suspect]
     Active Substance: TEDUGLUTIDE
     Dosage: 0.5 MILLIGRAM, 4/WEEK
     Route: 065
     Dates: start: 20190326
  10. TEDUGLUTIDE [Suspect]
     Active Substance: TEDUGLUTIDE
     Dosage: 0.5 MILLIGRAM, 4/WEEK
     Route: 065
     Dates: start: 20190326
  11. TEDUGLUTIDE [Suspect]
     Active Substance: TEDUGLUTIDE
     Dosage: 0.5 MILLIGRAM, 4/WEEK
     Route: 065
     Dates: start: 20190326
  12. TEDUGLUTIDE [Suspect]
     Active Substance: TEDUGLUTIDE
     Dosage: 0.5 MILLIGRAM, 4/WEEK
     Route: 065
     Dates: start: 20190326
  13. TEDUGLUTIDE [Suspect]
     Active Substance: TEDUGLUTIDE
     Dosage: 5 MILLIGRAM, 4/WEEK
     Route: 065
     Dates: start: 2019
  14. TEDUGLUTIDE [Suspect]
     Active Substance: TEDUGLUTIDE
     Dosage: 5 MILLIGRAM, 4/WEEK
     Route: 065
     Dates: start: 2019
  15. TEDUGLUTIDE [Suspect]
     Active Substance: TEDUGLUTIDE
     Dosage: 5 MILLIGRAM, 4/WEEK
     Route: 065
     Dates: start: 2019
  16. TEDUGLUTIDE [Suspect]
     Active Substance: TEDUGLUTIDE
     Dosage: 5 MILLIGRAM, 4/WEEK
     Route: 065
     Dates: start: 2019
  17. BOTULINUM TOXIN TYPE A [Concomitant]
     Active Substance: BOTULINUM TOXIN TYPE A
     Indication: Urinary incontinence
     Dosage: UNK
     Route: 058
     Dates: start: 20190320
  18. CREON [Concomitant]
     Active Substance: PANCRELIPASE AMYLASE\PANCRELIPASE LIPASE\PANCRELIPASE PROTEASE
     Indication: Pancreatic enzymes
     Dosage: UNK
     Route: 048
     Dates: start: 20190326
  19. ATROPINE\DIPHENOXYLATE [Concomitant]
     Active Substance: ATROPINE\DIPHENOXYLATE
     Indication: Diarrhoea
     Dosage: 2 MILLIGRAM
     Route: 048
     Dates: start: 20190326
  20. LOPERAMIDE [Concomitant]
     Active Substance: LOPERAMIDE
     Indication: Diarrhoea
     Dosage: UNK
     Route: 048
     Dates: start: 20190323

REACTIONS (1)
  - Splenomegaly [Recovered/Resolved]

NARRATIVE: CASE EVENT DATE: 20201121
